FAERS Safety Report 7725104-7 (Version None)
Quarter: 2011Q3

REPORT INFORMATION
  Report Type: 
  Country: None (occurrence: None)
  Receive Date: 20110901
  Receipt Date: 20110823
  Transmission Date: 20111222
  Serious: Yes (Hospitalization)
  Sender: FDA-Public Use
  Company Number: GB-PFIZER INC-2011196443

PATIENT
  Age: 58 Year
  Sex: Female

DRUGS (13)
  1. DOXYCYCLINE [Concomitant]
  2. ATROPINE [Concomitant]
  3. GRANISETRON [Concomitant]
  4. DOMPERIDONE [Concomitant]
  5. IRINOTECAN HCL [Suspect]
     Indication: COLORECTAL CANCER METASTATIC
     Dosage: 200 MG, WEEKLY
     Route: 042
     Dates: start: 20110715, end: 20110729
  6. DERMOL SOL [Concomitant]
  7. UVISTAT CREAM [Concomitant]
  8. CHLORPHENAMINE [Concomitant]
  9. CETUXIMAB [Suspect]
     Indication: COLORECTAL CANCER METASTATIC
     Dosage: 650 MG, WEEKLY
     Route: 042
     Dates: start: 20110715, end: 20110715
  10. CETUXIMAB [Suspect]
     Dosage: 400 MG, WEEKLY
     Route: 042
     Dates: start: 20110729, end: 20110729
  11. DEXAMETHASONE [Concomitant]
  12. BONJELA [Concomitant]
  13. HYDROCORTISONE [Concomitant]

REACTIONS (1)
  - DEVICE RELATED INFECTION [None]
